FAERS Safety Report 10464665 (Version 3)
Quarter: 2014Q4

REPORT INFORMATION
  Report Type: Spontaneous
  Country: FR (occurrence: FR)
  Receive Date: 20140919
  Receipt Date: 20141014
  Transmission Date: 20150528
  Serious: Yes (Hospitalization, Other)
  Sender: FDA-Public Use
  Company Number: FR-MERCK-1409FRA008870

PATIENT
  Sex: Female

DRUGS (1)
  1. JANUVIA [Suspect]
     Active Substance: SITAGLIPTIN PHOSPHATE
     Indication: DIABETES MELLITUS
     Dosage: TOTAL DAILY DOSE 1 TABLET, ONCE
     Route: 048

REACTIONS (2)
  - Anaphylactic shock [Recovered/Resolved]
  - Streptococcal infection [Unknown]
